FAERS Safety Report 5616503-8 (Version None)
Quarter: 2008Q1

REPORT INFORMATION
  Report Type: 
  Country: None (occurrence: None)
  Receive Date: 20080207
  Receipt Date: 20080204
  Transmission Date: 20080703
  Serious: Yes (Hospitalization)
  Sender: FDA-Public Use
  Company Number: US-BRISTOL-MYERS SQUIBB COMPANY-14064059

PATIENT
  Age: 68 Year
  Sex: Female
  Weight: 74 kg

DRUGS (16)
  1. ERBITUX [Suspect]
     Indication: SQUAMOUS CELL CARCINOMA
     Dosage: 400 MG/M*2 DAY 1, THEN 250 MG/M*2 EVERY 8 DAYS.
     Route: 042
     Dates: start: 20071128, end: 20071220
  2. ALIMTA [Suspect]
     Indication: SQUAMOUS CELL CARCINOMA
     Route: 042
     Dates: start: 20071128, end: 20071220
  3. RADIATION THERAPY [Suspect]
     Indication: SQUAMOUS CELL CARCINOMA
     Dosage: 1 DOSAGE FORM = 1 GY.
     Dates: start: 20071128, end: 20071227
  4. METOPROLOL TARTRATE [Concomitant]
  5. ACYCLOVIR [Concomitant]
  6. FENTANYL TRANSDERMAL SYSTEM [Concomitant]
  7. FOLIC ACID [Concomitant]
  8. LIPITOR [Concomitant]
  9. DECADRON [Concomitant]
  10. FLUCONAZOLE [Concomitant]
  11. SYNTHROID [Concomitant]
  12. MAGIC MOUTHWASH [Concomitant]
  13. MAGNESIUM OXIDE [Concomitant]
  14. OXYCODONE HCL [Concomitant]
  15. PREVACID [Concomitant]
  16. VITAMIN B-12 [Concomitant]

REACTIONS (6)
  - HAEMOGLOBIN DECREASED [None]
  - INTERNATIONAL NORMALISED RATIO INCREASED [None]
  - MUCOSAL INFLAMMATION [None]
  - NEUTROPHIL COUNT DECREASED [None]
  - PLATELET COUNT DECREASED [None]
  - RASH [None]
